FAERS Safety Report 15584968 (Version 1)
Quarter: 2018Q4

REPORT INFORMATION
  Report Type: Spontaneous
  Country: GB (occurrence: GB)
  Receive Date: 20181105
  Receipt Date: 20181105
  Transmission Date: 20190205
  Serious: Yes (Other)
  Sender: FDA-Public Use
  Company Number: GB-BAYER-2018-201124

PATIENT
  Age: 41 Year
  Sex: Female

DRUGS (5)
  1. RIFAMPICIN [Suspect]
     Active Substance: RIFAMPIN
  2. MOXIFLOXACIN ORAL [Suspect]
     Active Substance: MOXIFLOXACIN
     Indication: TUBERCULOSIS OF CENTRAL NERVOUS SYSTEM
  3. ISONIAZID. [Suspect]
     Active Substance: ISONIAZID
  4. PYRAZINAMIDE. [Suspect]
     Active Substance: PYRAZINAMIDE
  5. DEXAMETHASONE. [Suspect]
     Active Substance: DEXAMETHASONE

REACTIONS (3)
  - Product use in unapproved indication [None]
  - Vasculitis [None]
  - Off label use [None]
